FAERS Safety Report 5394838-4 (Version None)
Quarter: 2007Q3

REPORT INFORMATION
  Report Type: 
  Country: None (occurrence: None)
  Receive Date: 20070720
  Receipt Date: 20070711
  Transmission Date: 20080115
  Serious: Yes (Hospitalization)
  Sender: FDA-Public Use
  Company Number: TPA2007A01407

PATIENT
  Age: 36 Year
  Sex: Female
  Weight: 118 kg

DRUGS (3)
  1. PIOGLITAZONE HCL [Suspect]
     Indication: TYPE 2 DIABETES MELLITUS
     Dosage: 15 MG, 2 IN 1 D, PER ORAL
     Route: 048
     Dates: start: 20070609, end: 20070618
  2. PIOGLITAZONE HCL [Suspect]
     Indication: TYPE 2 DIABETES MELLITUS
     Dosage: 15 MG, 2 IN 1 D, PER ORAL
     Route: 048
     Dates: start: 20070621
  3. LANTUS [Concomitant]

REACTIONS (6)
  - BACTERIA URINE [None]
  - BLOOD POTASSIUM DECREASED [None]
  - DEHYDRATION [None]
  - HYPERGLYCAEMIA [None]
  - LOSS OF CONSCIOUSNESS [None]
  - TRICHOMONIASIS [None]
